FAERS Safety Report 7744784-3 (Version None)
Quarter: 2011Q3

REPORT INFORMATION
  Report Type: 
  Country: None (occurrence: None)
  Receive Date: 20110912
  Receipt Date: 20110912
  Transmission Date: 20111222
  Serious: Yes (Disabling, Other)
  Sender: FDA-Public Use
  Company Number: None

PATIENT
  Age: 25 Year
  Sex: Female
  Weight: 50.802 kg

DRUGS (1)
  1. TOPAMAX [Suspect]
     Indication: EPILEPSY
     Dosage: 100 MG
     Route: 048
     Dates: start: 20100825, end: 20101101

REACTIONS (3)
  - THIRST [None]
  - MICTURITION URGENCY [None]
  - HYPERTHYROIDISM [None]
